FAERS Safety Report 10677258 (Version 2)
Quarter: 2015Q1

REPORT INFORMATION
  Report Type: Spontaneous
  Country: RU (occurrence: RU)
  Receive Date: 20141226
  Receipt Date: 20150213
  Transmission Date: 20150720
  Serious: Yes (Hospitalization)
  Sender: FDA-Public Use
  Company Number: RU-ABBVIE-14P-251-1326174-00

PATIENT
  Age: 29 Year
  Sex: Female

DRUGS (13)
  1. NORVIR [Suspect]
     Active Substance: RITONAVIR
     Indication: HIV INFECTION
     Route: 065
  2. STAG [Concomitant]
     Active Substance: STAVUDINE
     Indication: HIV INFECTION
  3. KALETRA [Suspect]
     Active Substance: LOPINAVIR\RITONAVIR
     Indication: HIV INFECTION
     Route: 048
     Dates: start: 201006, end: 201009
  4. PHOSPHAZID [Concomitant]
     Active Substance: PHOSPHAZIDE
     Indication: PROPHYLAXIS AGAINST HIV INFECTION
     Dates: start: 201006, end: 201009
  5. EPIVIR [Concomitant]
     Active Substance: LAMIVUDINE
     Indication: PROPHYLAXIS AGAINST HIV INFECTION
  6. KALETRA [Suspect]
     Active Substance: LOPINAVIR\RITONAVIR
     Indication: PROPHYLAXIS AGAINST HIV INFECTION
     Route: 048
     Dates: start: 20120222, end: 20120515
  7. INVIRASE [Concomitant]
     Active Substance: SAQUINAVIR MESYLATE
     Indication: HIV INFECTION
  8. KALETRA [Suspect]
     Active Substance: LOPINAVIR\RITONAVIR
     Route: 048
  9. KIVEXA [Suspect]
     Active Substance: ABACAVIR SULFATE\LAMIVUDINE
     Indication: HIV INFECTION
     Route: 065
     Dates: start: 20120211, end: 20120222
  10. COMBIVIR [Concomitant]
     Active Substance: LAMIVUDINE\ZIDOVUDINE
     Indication: HIV INFECTION
  11. EPIVIR [Concomitant]
     Active Substance: LAMIVUDINE
     Indication: HIV INFECTION
     Dates: start: 201006, end: 201009
  12. STOCRIN [Concomitant]
     Active Substance: EFAVIRENZ
     Indication: HIV INFECTION
     Dates: start: 20120211, end: 20120222
  13. HEPA-MERZ [Concomitant]
     Indication: HIV INFECTION
     Dates: start: 20120515, end: 20120605

REACTIONS (6)
  - Alanine aminotransferase increased [Recovered/Resolved]
  - Blood bilirubin increased [Recovered/Resolved]
  - Haemoglobin increased [Unknown]
  - Body temperature increased [Unknown]
  - Aspartate aminotransferase increased [Recovered/Resolved]
  - Diarrhoea [Recovered/Resolved]
